FAERS Safety Report 6846068-4 (Version None)
Quarter: 2010Q3

REPORT INFORMATION
  Report Type: 
  Country: None (occurrence: None)
  Receive Date: 20100715
  Receipt Date: 20070928
  Transmission Date: 20110219
  Serious: Yes (Other)
  Sender: FDA-Public Use
  Company Number: US-PFIZER INC-2007073143

PATIENT
  Age: 56 Year
  Sex: Female

DRUGS (2)
  1. CHANTIX [Suspect]
  2. LIPITOR [Suspect]
     Dates: end: 20070901

REACTIONS (7)
  - CHEST PAIN [None]
  - EMOTIONAL DISORDER [None]
  - FATIGUE [None]
  - FLATULENCE [None]
  - MOOD SWINGS [None]
  - MUSCULAR WEAKNESS [None]
  - WEIGHT INCREASED [None]
